FAERS Safety Report 6222355-8 (Version None)
Quarter: 2009Q2

REPORT INFORMATION
  Report Type: 
  Country: None (occurrence: None)
  Receive Date: 20090611
  Receipt Date: 20090521
  Transmission Date: 20091009
  Serious: Yes (Life-Threatening, Hospitalization)
  Sender: FDA-Public Use
  Company Number: GB-GENENTECH-223046

PATIENT
  Sex: Male
  Weight: 92 kg

DRUGS (5)
  1. BEVACIZUMAB [Suspect]
     Indication: COLON CANCER
     Dosage: 687.5 MG, Q3W
     Route: 042
     Dates: start: 20060109, end: 20060224
  2. CAPECITABINE [Suspect]
     Indication: COLON CANCER
     Dosage: 2000 MG, BID
     Route: 048
     Dates: start: 20060109
  3. OXALIPLATIN [Suspect]
     Indication: COLON CANCER
     Dosage: 260 MG, Q3W
     Route: 042
     Dates: start: 20060109
  4. RAMIPRIL [Concomitant]
     Indication: DRUG USE FOR UNKNOWN INDICATION
     Dates: start: 20060224
  5. BISOPROLOL [Concomitant]
     Indication: DRUG USE FOR UNKNOWN INDICATION

REACTIONS (2)
  - HYPERTENSION [None]
  - REVERSIBLE POSTERIOR LEUKOENCEPHALOPATHY SYNDROME [None]
